FAERS Safety Report 4399297-6 (Version None)
Quarter: 2004Q3

REPORT INFORMATION
  Report Type: 
  Country: None (occurrence: None)
  Receive Date: 20040712
  Receipt Date: 20040628
  Transmission Date: 20050211
  Serious: Yes (Hospitalization)
  Sender: FDA-Public Use
  Company Number: BRO-007523

PATIENT
  Age: 50 Year
  Sex: Female

DRUGS (2)
  1. IOPAMIDOL-370 [Suspect]
     Indication: ANGINA PECTORIS
     Dosage: 75 ML
     Route: 022
     Dates: start: 20040420, end: 20040420
  2. IOPAMIDOL-370 [Suspect]
     Indication: ARTERIOGRAM CORONARY
     Dosage: 75 ML
     Route: 022
     Dates: start: 20040420, end: 20040420

REACTIONS (10)
  - ARTERIOSPASM CORONARY [None]
  - CEREBRAL INFARCTION [None]
  - CHEST PAIN [None]
  - CORONARY ARTERY OCCLUSION [None]
  - ELECTROCARDIOGRAM ST SEGMENT ELEVATION [None]
  - HYPERSENSITIVITY [None]
  - HYPOKINESIA [None]
  - LOSS OF CONSCIOUSNESS [None]
  - VENTRICULAR FIBRILLATION [None]
  - VENTRICULAR TACHYCARDIA [None]
